FAERS Safety Report 8107350-6 (Version None)
Quarter: 2012Q1

REPORT INFORMATION
  Report Type: 
  Country: None (occurrence: None)
  Receive Date: 20120202
  Receipt Date: 20120126
  Transmission Date: 20120608
  Serious: No
  Sender: FDA-Public Use
  Company Number: US-B.I. PHARMACEUTICALS,INC./RIDGEFIELD-2012-BP-01603BP

PATIENT
  Age: 75 Year
  Sex: Male

DRUGS (5)
  1. LISINOPRIL [Concomitant]
     Indication: HYPERTENSION
  2. METFORMIN HCL [Concomitant]
     Indication: DIABETES MELLITUS
  3. LEVASTATIN [Concomitant]
     Indication: BLOOD CHOLESTEROL
  4. PRADAXA [Suspect]
     Indication: ATRIAL FIBRILLATION
     Dosage: 300 MG
     Route: 048
     Dates: start: 20111126
  5. PACERONE [Concomitant]
     Indication: CARDIAC DISORDER

REACTIONS (2)
  - ASTHENIA [None]
  - DIZZINESS [None]
